FAERS Safety Report 10274693 (Version 1)
Quarter: 2014Q3

REPORT INFORMATION
  Report Type: Spontaneous
  Country: US (occurrence: CA)
  Receive Date: 20140702
  Receipt Date: 20140702
  Transmission Date: 20150326
  Serious: Yes (Death, Congenital Anomaly, Other)
  Sender: FDA-Public Use
  Company Number: CA-TEVA-491380USA

PATIENT

DRUGS (1)
  1. ONDANSETRON [Suspect]
     Active Substance: ONDANSETRON
     Route: 064

REACTIONS (9)
  - Jaundice neonatal [Unknown]
  - Off label use [Unknown]
  - Sudden infant death syndrome [Fatal]
  - Atrial septal defect [Unknown]
  - Kidney malformation [Unknown]
  - Foetal growth restriction [Unknown]
  - Congenital musculoskeletal anomaly [Unknown]
  - Deformity [Unknown]
  - Foetal exposure during pregnancy [Unknown]
